FAERS Safety Report 17072880 (Version 1)
Quarter: 2019Q4

REPORT INFORMATION
  Report Type: Spontaneous
  Country: DE (occurrence: DE)
  Receive Date: 20191125
  Receipt Date: 20191125
  Transmission Date: 20200122
  Serious: Yes (Hospitalization)
  Sender: FDA-Public Use
  Company Number: DE-MYLANLABS-2019M1113198

PATIENT
  Age: 69 Year
  Sex: Male

DRUGS (9)
  1. AMIODARONE [Suspect]
     Active Substance: AMIODARONE
     Indication: PRODUCT USED FOR UNKNOWN INDICATION
     Dosage: 200 MG, 1-0-0-0
  2. METOPROLOL. [Concomitant]
     Active Substance: METOPROLOL
     Dosage: 23.75 MG, 1-0-0-0
  3. PANTOPRAZOL                        /01263201/ [Concomitant]
     Active Substance: PANTOPRAZOLE
     Dosage: 40 MG, 1-0-1-0
  4. TORASEMID [Concomitant]
     Active Substance: TORSEMIDE
     Dosage: 10 MG, 1-1-0-0
  5. KALINOR                            /00279301/ [Concomitant]
     Active Substance: CITRIC ACID MONOHYDRATE\POTASSIUM BICARBONATE\POTASSIUM CITRATE
     Dosage: 1-1-1-1, BRAUSETABLETTEN
  6. XIPAMID [Concomitant]
     Active Substance: XIPAMIDE
     Dosage: 20 MG, 1-0-0-0
  7. ENOXAPARIN [Concomitant]
     Active Substance: ENOXAPARIN
     Dosage: 0.4 ML, 0-0-1-0
  8. SIMVASTATIN. [Concomitant]
     Active Substance: SIMVASTATIN
     Dosage: 40 MG, 0-0-1-0
  9. CLOPIDOGREL [Concomitant]
     Active Substance: CLOPIDOGREL BISULFATE
     Dosage: 75 MG, 1-0-0-0

REACTIONS (2)
  - Oedema peripheral [Unknown]
  - Dyspnoea [Unknown]
